FAERS Safety Report 19946077 (Version 1)
Quarter: 2021Q4

REPORT INFORMATION
  Report Type: Report from Study
  Country: IT (occurrence: IT)
  Receive Date: 20211012
  Receipt Date: 20211012
  Transmission Date: 20220303
  Serious: Yes (Hospitalization)
  Sender: FDA-Public Use
  Company Number: IT-CELLTRION HEALTHCARE HUNGARY KFT-2020IT017619

PATIENT

DRUGS (4)
  1. TRASTUZUMAB [Suspect]
     Active Substance: TRASTUZUMAB
     Indication: Breast cancer
     Dosage: 8 MILLIGRAM/KILOGRAM, Q3W (8 MG/KG, EVERY 3 WEEKS)
     Route: 041
     Dates: start: 20190311
  2. TRASTUZUMAB [Suspect]
     Active Substance: TRASTUZUMAB
     Dosage: 354 MILLIGRAM, Q3W
     Route: 041
     Dates: start: 20190401
  3. PACLITAXEL [Suspect]
     Active Substance: PACLITAXEL
     Indication: Breast cancer
     Dosage: 75 MILLIGRAM/SQ. METER, Q3W (75 MG/M2, EVERY 3 WEEKS)
     Route: 042
     Dates: start: 20190311
  4. PERTUZUMAB [Suspect]
     Active Substance: PERTUZUMAB
     Indication: Breast cancer
     Dosage: 840 MILLIGRAM, Q3W (840 MG, EVERY 3 WEEKS)
     Route: 058
     Dates: start: 20190311

REACTIONS (2)
  - Mucosal inflammation [Recovered/Resolved]
  - Hyperpyrexia [Recovered/Resolved]

NARRATIVE: CASE EVENT DATE: 20190718
